FAERS Safety Report 4980898-9 (Version None)
Quarter: 2006Q2

REPORT INFORMATION
  Report Type: 
  Country: None (occurrence: None)
  Receive Date: 20060424
  Receipt Date: 20060412
  Transmission Date: 20061013
  Serious: Yes (Death)
  Sender: FDA-Public Use
  Company Number: JP-JNJFOC-20060404755

PATIENT

DRUGS (1)
  1. OFLOCET [Suspect]
     Indication: DRUG USE FOR UNKNOWN INDICATION
     Route: 064

REACTIONS (4)
  - DRUG EXPOSURE DURING PREGNANCY [None]
  - INTRA-UTERINE DEATH [None]
  - PLACENTAL INSUFFICIENCY [None]
  - PREGNANCY [None]
